FAERS Safety Report 4976800-6 (Version None)
Quarter: 2006Q2

REPORT INFORMATION
  Report Type: 
  Country: None (occurrence: None)
  Receive Date: 20060413
  Receipt Date: 20060330
  Transmission Date: 20061013
  Serious: Yes (Life-Threatening, Hospitalization)
  Sender: FDA-Public Use
  Company Number: 2006-BP-03571RO

PATIENT
  Sex: Male

DRUGS (7)
  1. METHADONE HCL [Suspect]
     Indication: PAIN
     Dosage: 10 MG Q8H (10 MG); SEE IMAGE
  2. SERTRALINE [Suspect]
     Indication: DEPRESSION
     Dosage: 100 MG QD
  3. CELECOXIB (CELECOXIB) [Concomitant]
  4. LEVOTHYROXINE SODIUM [Concomitant]
  5. MEGESTROL ACETATE [Concomitant]
  6. PROMETHAZINE [Concomitant]
  7. LAXATIVES (LAXATIVES) [Concomitant]

REACTIONS (6)
  - ANALGESIC DRUG LEVEL INCREASED [None]
  - COMA [None]
  - DRUG INTERACTION [None]
  - DRUG WITHDRAWAL SYNDROME [None]
  - LABORATORY TEST INTERFERENCE [None]
  - RESPIRATORY DEPRESSION [None]
